FAERS Safety Report 11190236 (Version 1)
Quarter: 2015Q2

REPORT INFORMATION
  Report Type: Spontaneous
  Country: US (occurrence: None)
  Receive Date: 20150612
  Receipt Date: 20150612
  Transmission Date: 20150821
  Serious: No
  Sender: FDA-Public Use
  Company Number: None

PATIENT
  Age: 35 Year
  Sex: Male

DRUGS (4)
  1. HOMATROPINE HOMOBROBIDE DROPS [Concomitant]
  2. ROSUVAS F5 (ROSUVASTATIN 5MG, FENOFIBRATE 160MG) [Suspect]
     Active Substance: FENOFIBRATE\ROSUVASTATIN CALCIUM
     Indication: BLOOD TRIGLYCERIDES INCREASED
     Route: 048
  3. ROSUVAS F5 (ROSUVASTATIN 5MG, FENOFIBRATE 160MG) [Suspect]
     Active Substance: FENOFIBRATE\ROSUVASTATIN CALCIUM
     Indication: BLOOD CHOLESTEROL INCREASED
     Route: 048
  4. PREDNISOLONE EYE DROPS [Concomitant]

REACTIONS (5)
  - Suffocation feeling [None]
  - Dysphagia [None]
  - Feeling abnormal [None]
  - Oropharyngeal pain [None]
  - Headache [None]

NARRATIVE: CASE EVENT DATE: 20150610
